FAERS Safety Report 8810074 (Version 1)
Quarter: 2012Q4

REPORT INFORMATION
  Report Type: Report from Study
  Country: US (occurrence: US)
  Receive Date: 20120926
  Receipt Date: 20120926
  Transmission Date: 20130627
  Serious: Yes (Hospitalization)
  Sender: FDA-Public Use
  Company Number: US-US-EMD SERONO, INC.-7162411

PATIENT
  Age: 20 Year
  Sex: Female

DRUGS (1)
  1. REBIF [Suspect]
     Indication: MULTIPLE SCLEROSIS
     Route: 058
     Dates: start: 20120813

REACTIONS (8)
  - Dizziness [Recovering/Resolving]
  - Visual impairment [Recovering/Resolving]
  - Hypoaesthesia oral [Recovering/Resolving]
  - Hearing impaired [Recovering/Resolving]
  - Headache [Recovering/Resolving]
  - Multiple sclerosis [Unknown]
  - Crying [Unknown]
  - Vomiting [Unknown]
